FAERS Safety Report 5745792-4 (Version None)
Quarter: 2008Q2

REPORT INFORMATION
  Report Type: 
  Country: None (occurrence: None)
  Receive Date: 20080521
  Receipt Date: 20080319
  Transmission Date: 20081010
  Serious: Yes (Hospitalization)
  Sender: FDA-Public Use
  Company Number: JP-PFIZER INC-2008042672

PATIENT
  Age: 28 Year
  Sex: Female

DRUGS (2)
  1. ZOLOFT [Suspect]
     Indication: DEPRESSION
     Dosage: DAILY DOSE:50MG
     Route: 048
     Dates: start: 20071101, end: 20080229
  2. ALL OTHER THERAPEUTIC PRODUCTS [Suspect]
     Indication: SLEEP DISORDER
     Route: 048

REACTIONS (3)
  - HEPATIC FUNCTION ABNORMAL [None]
  - NAUSEA [None]
  - REFLUX OESOPHAGITIS [None]
